FAERS Safety Report 15724188 (Version 1)
Quarter: 2018Q4

REPORT INFORMATION
  Report Type: Spontaneous
  Country: US (occurrence: US)
  Receive Date: 20181214
  Receipt Date: 20181214
  Transmission Date: 20190205
  Serious: Yes (Death)
  Sender: FDA-Public Use
  Company Number: US-FERRINGPH-2018FE07130

PATIENT

DRUGS (1)
  1. STIMATE [Suspect]
     Active Substance: DESMOPRESSIN ACETATE
     Indication: HAEMORRHAGE
     Dosage: 300 ?G, EVERY 24-48H OR PRN
     Route: 045
     Dates: start: 20130128

REACTIONS (1)
  - Death [Fatal]

NARRATIVE: CASE EVENT DATE: 20180710
